FAERS Safety Report 7155964-2 (Version None)
Quarter: 2010Q4

REPORT INFORMATION
  Report Type: 
  Country: None (occurrence: None)
  Receive Date: 20101214
  Receipt Date: 20101202
  Transmission Date: 20110411
  Serious: Yes (Other)
  Sender: FDA-Public Use
  Company Number: PHHY2010AU45079

PATIENT
  Age: 72 Year
  Sex: Female

DRUGS (5)
  1. ACLASTA [Suspect]
     Indication: OSTEOPOROSIS
     Dosage: 5 MG
     Route: 042
     Dates: start: 20100702
  2. ASPIRIN [Concomitant]
     Dosage: UNK
     Route: 048
  3. CRESTOR [Concomitant]
     Dosage: 20 GM
     Route: 048
  4. MOBIC [Concomitant]
     Dosage: UNK
     Route: 048
  5. MEFLOQUINE HYDROCHLORIDE [Concomitant]
     Dosage: UNK
     Route: 048

REACTIONS (17)
  - ARTHRALGIA [None]
  - BACK PAIN [None]
  - BONE PAIN [None]
  - CHILLS [None]
  - DRY MOUTH [None]
  - FATIGUE [None]
  - FEELING ABNORMAL [None]
  - FEELING HOT [None]
  - HEADACHE [None]
  - INSOMNIA [None]
  - MALAISE [None]
  - MUSCULOSKELETAL CHEST PAIN [None]
  - MYALGIA [None]
  - PAIN [None]
  - PAIN IN EXTREMITY [None]
  - SINUS DISORDER [None]
  - SPLINT APPLICATION [None]
